FAERS Safety Report 15890928 (Version 1)
Quarter: 2019Q1

REPORT INFORMATION
  Report Type: Report from Study
  Country: MX (occurrence: MX)
  Receive Date: 20190130
  Receipt Date: 20190130
  Transmission Date: 20190417
  Serious: Yes (Hospitalization)
  Sender: FDA-Public Use
  Company Number: PHHY2019MX021136

PATIENT
  Sex: Female
  Weight: 65 kg

DRUGS (1)
  1. ENTRESTO [Suspect]
     Active Substance: SACUBITRIL\VALSARTAN
     Indication: CARDIAC DISORDER
     Dosage: 2 DF, BID
     Route: 048
     Dates: start: 201809

REACTIONS (3)
  - Blood pressure increased [Recovering/Resolving]
  - Product use in unapproved indication [Unknown]
  - Cardiac murmur [Recovering/Resolving]
